FAERS Safety Report 9227751 (Version 3)
Quarter: 2013Q2

REPORT INFORMATION
  Report Type: Report from Study
  Country: US (occurrence: US)
  Receive Date: 20130412
  Receipt Date: 20130522
  Transmission Date: 20140414
  Serious: Yes (Other)
  Sender: FDA-Public Use
  Company Number: US-PURDUE-USA-2013-0100795

PATIENT
  Age: 70 Year
  Sex: Female
  Weight: 77.1 kg

DRUGS (10)
  1. OXYCONTIN (NDA 22-272) [Suspect]
     Indication: PAIN
     Dosage: 200 MG, DAILY
     Route: 048
  2. OXYCONTIN (NDA 22-272) [Suspect]
     Dosage: 40 MG, 2 TABS IN THE A.M, 1 TAB AT NOON AND 2 TABS AT P.M
     Route: 048
  3. OXYCODONE HCL IMMEDIATE RELEASE (91-490) [Concomitant]
     Indication: BREAKTHROUGH PAIN
     Dosage: 20 MG, BID
     Route: 048
     Dates: start: 2012
  4. POTASSIUM [Concomitant]
     Indication: SUPPLEMENTATION THERAPY
     Dosage: 20 MEQ, DAILY
     Route: 048
  5. LASIX                              /00032601/ [Concomitant]
     Indication: SWELLING
     Dosage: 40 MG, PRN
     Route: 048
  6. MAGNESIUM [Concomitant]
     Indication: SUPPLEMENTATION THERAPY
     Dosage: 200 MG, BID
     Route: 048
  7. XANAX [Concomitant]
     Indication: POST-TRAUMATIC STRESS DISORDER
     Dosage: 2 MG, BID
     Route: 048
     Dates: start: 1986
  8. CARDIAZEM                          /00489701/ [Concomitant]
     Indication: PRODUCT USED FOR UNKNOWN INDICATION
     Dosage: 180 MG, DAILY
     Route: 048
  9. OXYGEN [Concomitant]
     Indication: PRODUCT USED FOR UNKNOWN INDICATION
     Dosage: UNK, AT NIGHT
     Route: 045
  10. VITAMIN D                          /00107901/ [Concomitant]
     Indication: VITAMIN D DEFICIENCY
     Dosage: 5000 MG, DAILY
     Route: 048
     Dates: start: 2012

REACTIONS (9)
  - Bladder neoplasm [Unknown]
  - Fall [Unknown]
  - Multiple fractures [Unknown]
  - Drug withdrawal syndrome [Unknown]
  - Arthritis [Unknown]
  - Joint stiffness [Unknown]
  - General physical health deterioration [Unknown]
  - Hyperhidrosis [Not Recovered/Not Resolved]
  - Hypokinesia [Not Recovered/Not Resolved]
